FAERS Safety Report 25286160 (Version 1)
Quarter: 2025Q2

REPORT INFORMATION
  Report Type: Report from Study
  Country: GB (occurrence: GB)
  Receive Date: 20250509
  Receipt Date: 20250509
  Transmission Date: 20250717
  Serious: Yes (Other)
  Sender: ABBVIE
  Company Number: GB-ABBVIE-6270821

PATIENT
  Age: 65 Year
  Sex: Female
  Weight: 111.3 kg

DRUGS (4)
  1. SKYRIZI [Suspect]
     Active Substance: RISANKIZUMAB-RZAA
     Indication: Psoriasis
     Route: 058
     Dates: start: 20220907
  2. CANDESARTAN [Concomitant]
     Active Substance: CANDESARTAN
     Indication: Product used for unknown indication
     Dates: start: 20020601
  3. FUROSEMIDE [Concomitant]
     Active Substance: FUROSEMIDE
     Indication: Product used for unknown indication
     Dates: start: 20200526
  4. DOSTARLIMAB [Concomitant]
     Active Substance: DOSTARLIMAB
     Indication: Product used for unknown indication
     Dates: start: 20241112

REACTIONS (1)
  - Endometrial cancer stage I [Not Recovered/Not Resolved]

NARRATIVE: CASE EVENT DATE: 20240903
